APPROVED DRUG PRODUCT: AMPICILLIN SODIUM
Active Ingredient: AMPICILLIN SODIUM
Strength: EQ 500MG BASE/VIAL
Dosage Form/Route: INJECTABLE;INJECTION
Application: A062565 | Product #001
Applicant: ELI LILLY AND CO
Approved: Apr 4, 1985 | RLD: No | RS: No | Type: DISCN